FAERS Safety Report 18253936 (Version 1)
Quarter: 2020Q3

REPORT INFORMATION
  Report Type: Spontaneous
  Country: AR (occurrence: AR)
  Receive Date: 20200910
  Receipt Date: 20200910
  Transmission Date: 20201103
  Serious: Yes (Death, Other)
  Sender: FDA-Public Use
  Company Number: AR-ROCHE-2673867

PATIENT

DRUGS (1)
  1. ACTEMRA [Suspect]
     Active Substance: TOCILIZUMAB
     Indication: DIFFUSE VASCULITIS
     Dosage: DOSE AND FREQUENCY NOT REPORTED
     Route: 042

REACTIONS (4)
  - Intentional product use issue [Unknown]
  - Inflammation [Unknown]
  - Renal failure [Fatal]
  - Off label use [Unknown]
